FAERS Safety Report 13996460 (Version 4)
Quarter: 2017Q4

REPORT INFORMATION
  Report Type: Spontaneous
  Country: JP (occurrence: JP)
  Receive Date: 20170921
  Receipt Date: 20171223
  Transmission Date: 20180321
  Serious: Yes (Hospitalization)
  Sender: FDA-Public Use
  Company Number: PHJP2017JP028785

PATIENT
  Age: 75 Year
  Sex: Female
  Weight: 51.3 kg

DRUGS (10)
  1. FOSAMAC [Concomitant]
     Active Substance: ALENDRONATE SODIUM
     Indication: PROPHYLAXIS
     Dosage: 35 MG, UNK
     Route: 065
     Dates: start: 20150807
  2. SALAZOSULFAPYRIDINE [Concomitant]
     Active Substance: SULFASALAZINE
     Indication: SPONDYLITIS
     Dosage: 1000 MG, UNK
     Route: 065
     Dates: start: 20170713
  3. NEXIUM [Concomitant]
     Active Substance: ESOMEPRAZOLE MAGNESIUM
     Indication: PROPHYLAXIS
     Dosage: 10 MG, UNK
     Route: 065
     Dates: start: 20150710
  4. REBAMIPIDE [Concomitant]
     Active Substance: REBAMIPIDE
     Indication: PROPHYLAXIS
     Dosage: 200 MG, UNK
     Route: 065
     Dates: start: 20150710
  5. PREDNISOLON [Suspect]
     Active Substance: PREDNISOLONE
     Indication: SPONDYLITIS
     Dosage: 5 MG, QD
     Route: 065
     Dates: start: 20150714
  6. AMLODIPINE [Concomitant]
     Active Substance: AMLODIPINE BESYLATE
     Indication: SPONDYLITIS
     Dosage: 5 G, UNK
     Route: 065
     Dates: start: 20150715
  7. COSENTYX [Suspect]
     Active Substance: SECUKINUMAB
     Indication: SPONDYLITIS
     Dosage: 150 MG, QW
     Route: 058
     Dates: start: 20170715, end: 20170818
  8. ETODOLAC. [Concomitant]
     Active Substance: ETODOLAC
     Indication: SPONDYLITIS
     Dosage: 200 MG, UNK
     Route: 065
     Dates: start: 20150825
  9. REZALTAS [Concomitant]
     Active Substance: AZELNIDIPINE\OLMESARTAN MEDOXOMIL
     Indication: HYPERTENSION
     Dosage: 16 MG (1DF: OLMESARTAN MEDOXOMIL 20MG/AZELNIDIPINE 16MG), UNK
     Route: 065
     Dates: start: 20150715
  10. SENNOSIDE [Concomitant]
     Active Substance: SENNOSIDES
     Indication: CONSTIPATION
     Dosage: 24 MG, UNK
     Route: 065
     Dates: start: 20150807

REACTIONS (4)
  - Diverticulitis [Recovered/Resolved]
  - Abdominal pain lower [Unknown]
  - Off label use [Unknown]
  - Pyrexia [Unknown]

NARRATIVE: CASE EVENT DATE: 20170902
